FAERS Safety Report 8970015 (Version 1)
Quarter: 2012Q4

REPORT INFORMATION
  Report Type: 
  Country: US (occurrence: US)
  Receive Date: 20121218
  Receipt Date: 20121218
  Transmission Date: 20130627
  Serious: No
  Sender: FDA-Public Use
  Company Number: US-BRISTOL-MYERS SQUIBB COMPANY-16530370

PATIENT
  Age: 19 Year
  Sex: Male
  Weight: 86.17 kg

DRUGS (4)
  1. ABILIFY [Suspect]
     Indication: DEPRESSION
     Dosage: At night
  2. ABILIFY [Suspect]
     Indication: ATTENTION DEFICIT/HYPERACTIVITY DISORDER
     Dosage: At night
  3. PROZAC [Concomitant]
  4. LAMICTAL [Concomitant]

REACTIONS (1)
  - Treatment noncompliance [Unknown]
